FAERS Safety Report 8192206-3 (Version None)
Quarter: 2012Q1

REPORT INFORMATION
  Report Type: 
  Country: None (occurrence: None)
  Receive Date: 20120307
  Receipt Date: 20120302
  Transmission Date: 20120608
  Serious: Yes (Hospitalization, Other)
  Sender: FDA-Public Use
  Company Number: US-PFIZER INC-2012019668

PATIENT
  Sex: Female
  Weight: 52 kg

DRUGS (12)
  1. TEMAZEPAM [Concomitant]
     Dosage: 30 MG, 1X/DAY
  2. FENTANYL [Concomitant]
     Dosage: 75 UG, UNK
  3. HYDROCODONE [Concomitant]
     Dosage: 10/325 MG, UNK
  4. PROZAC [Concomitant]
     Dosage: 20 MG, 1X/DAY
  5. HYDROCORTISONE [Interacting]
     Indication: ADDISON'S DISEASE
     Dosage: UNK
     Dates: start: 20111226
  6. TRAZODONE [Concomitant]
     Dosage: 50 MG, UNK
  7. CALCIUM [Concomitant]
     Dosage: 10 MG, 2X/DAY
  8. LYRICA [Suspect]
     Indication: FIBROMYALGIA
     Dosage: 150 MG, 2X/DAY
     Route: 048
     Dates: start: 20091001
  9. XANAX [Concomitant]
     Dosage: 1 MG, 3X/DAY
  10. ESTRADIOL [Concomitant]
     Dosage: 1 MG, 1X/DAY
  11. DALMANE [Concomitant]
     Dosage: 30 MG, 1X/DAY
  12. FLUDROCORTISONE [Concomitant]
     Dosage: 0.1 MG, 1X/DAY

REACTIONS (14)
  - ARTHRITIS [None]
  - FALL [None]
  - FATIGUE [None]
  - WEIGHT DECREASED [None]
  - NEUROPATHY PERIPHERAL [None]
  - BODY HEIGHT DECREASED [None]
  - ADDISON'S DISEASE [None]
  - MUSCLE DISORDER [None]
  - ANGIOEDEMA [None]
  - ASTHENIA [None]
  - MALAISE [None]
  - LOSS OF CONSCIOUSNESS [None]
  - DRUG INTERACTION [None]
  - FIBROMYALGIA [None]
